FAERS Safety Report 6295683-8 (Version None)
Quarter: 2009Q4

REPORT INFORMATION
  Report Type: 
  Country: None (occurrence: None)
  Receive Date: 20090803
  Receipt Date: 20090803
  Transmission Date: 20100525
  Serious: No
  Sender: FDA-Public Use
  Company Number: None

PATIENT
  Age: 44 Year
  Sex: Female

DRUGS (7)
  1. GABAPENTIN [Suspect]
     Dates: start: 20071204, end: 20080201
  2. CELEBREX [Suspect]
     Dates: start: 20071205, end: 20080502
  3. AMITRIPTYLINE HCL [Concomitant]
  4. IBUPROFEN [Concomitant]
  5. FLEXERIL [Concomitant]
  6. TRAZODONE HCL [Concomitant]
  7. MAXALT [Concomitant]

REACTIONS (6)
  - HEPATIC STEATOSIS [None]
  - HEPATITIS C ANTIBODY POSITIVE [None]
  - HEPATITIS C RNA POSITIVE [None]
  - HEPATITIS CHOLESTATIC [None]
  - HEPATOTOXICITY [None]
  - LIVER INJURY [None]
